FAERS Safety Report 15668259 (Version 2)
Quarter: 2019Q1

REPORT INFORMATION
  Report Type: Report from Study
  Country: DE (occurrence: DE)
  Receive Date: 20181129
  Receipt Date: 20190122
  Transmission Date: 20190417
  Serious: Yes (Hospitalization)
  Sender: FDA-Public Use
  Company Number: DE-ROCHE-2220475

PATIENT
  Age: 11 Year
  Sex: Female
  Weight: 36.3 kg

DRUGS (6)
  1. TOCILIZUMAB. [Suspect]
     Active Substance: TOCILIZUMAB
     Indication: STILL^S DISEASE
     Route: 042
     Dates: start: 20180823
  2. FOLIC ACID. [Concomitant]
     Active Substance: FOLIC ACID
     Indication: PROPHYLAXIS
     Route: 048
     Dates: start: 20180414
  3. METHOTREXAT [Suspect]
     Active Substance: METHOTREXATE
     Indication: STILL^S DISEASE
     Route: 058
     Dates: start: 20180414
  4. TOCILIZUMAB. [Suspect]
     Active Substance: TOCILIZUMAB
     Route: 042
     Dates: start: 20180920
  5. TOCILIZUMAB. [Suspect]
     Active Substance: TOCILIZUMAB
     Route: 042
     Dates: start: 20180906
  6. TOCILIZUMAB. [Suspect]
     Active Substance: TOCILIZUMAB
     Route: 042
     Dates: start: 20181005

REACTIONS (5)
  - Herpes ophthalmic [Recovered/Resolved]
  - Alanine aminotransferase increased [Recovered/Resolved]
  - Pyoderma [Recovered/Resolved]
  - Impetigo herpetiformis [Recovered/Resolved]
  - Leukopenia [Recovered/Resolved]

NARRATIVE: CASE EVENT DATE: 20181015
